FAERS Safety Report 6931075-3 (Version None)
Quarter: 2010Q3

REPORT INFORMATION
  Report Type: 
  Country: None (occurrence: None)
  Receive Date: 20100817
  Receipt Date: 20100817
  Transmission Date: 20110219
  Serious: Yes (Disabling, Other)
  Sender: FDA-Public Use
  Company Number: None

PATIENT
  Age: 6 Year
  Sex: Male
  Weight: 22.6799 kg

DRUGS (2)
  1. LAMOTRIGINE [Suspect]
     Indication: AFFECTIVE DISORDER
     Dosage: 25 MG 50 MG AM/PM PO
     Route: 048
     Dates: start: 20100525, end: 20100615
  2. ABILIFY [Suspect]
     Indication: ATTENTION DEFICIT/HYPERACTIVITY DISORDER
     Dosage: 6 MG 2 MG PO
     Route: 048
     Dates: start: 20090201, end: 20100615

REACTIONS (11)
  - ALANINE AMINOTRANSFERASE INCREASED [None]
  - ANGINA PECTORIS [None]
  - ASPARTATE AMINOTRANSFERASE INCREASED [None]
  - EMOTIONAL DISORDER [None]
  - FEELING ABNORMAL [None]
  - HEART RATE INCREASED [None]
  - HEPATIC FAILURE [None]
  - MALAISE [None]
  - NAUSEA [None]
  - TREMOR [None]
  - VOMITING [None]
